FAERS Safety Report 9088335 (Version 1)
Quarter: 2013Q1

REPORT INFORMATION
  Report Type: Report from Study
  Country: US (occurrence: US)
  Receive Date: 20130131
  Receipt Date: 20130131
  Transmission Date: 20140127
  Serious: No
  Sender: FDA-Public Use
  Company Number: US-ABBOTT-12P-163-0991177-00

PATIENT
  Age: 18 Year
  Sex: Male

DRUGS (5)
  1. HUMIRA [Suspect]
     Indication: CROHN^S DISEASE
     Dosage: LOADING DOSE
     Dates: start: 20120928
  2. PREDNISONE [Concomitant]
     Indication: PRODUCT USED FOR UNKNOWN INDICATION
     Dosage: 30MG DAILY TAPERING DOSE AFTER DAY 15
     Route: 048
  3. IRON SUPPLEMENT [Concomitant]
     Indication: CROHN^S DISEASE
     Dosage: 65MG DAILY
  4. VITAMIN C [Concomitant]
     Indication: CROHN^S DISEASE
     Dosage: 1000MG DAILY
     Route: 048
  5. VITAMIN D [Concomitant]
     Indication: CROHN^S DISEASE
     Dosage: WEEKLY

REACTIONS (1)
  - Injection site pain [Recovered/Resolved]
